FAERS Safety Report 10419114 (Version 1)
Quarter: 2014Q3

REPORT INFORMATION
  Report Type: Spontaneous
  Country: US (occurrence: US)
  Receive Date: 20140829
  Receipt Date: 20140829
  Transmission Date: 20150326
  Serious: No
  Sender: FDA-Public Use
  Company Number: US-PFIZER INC-2014236659

PATIENT
  Sex: Female

DRUGS (1)
  1. DETROL LA [Suspect]
     Active Substance: TOLTERODINE TARTRATE

REACTIONS (2)
  - Mucosal dryness [Unknown]
  - Drug intolerance [Unknown]
